FAERS Safety Report 8517606-0 (Version None)
Quarter: 2012Q3

REPORT INFORMATION
  Report Type: 
  Country: None (occurrence: None)
  Receive Date: 20120718
  Receipt Date: 20120626
  Transmission Date: 20120928
  Serious: No
  Sender: FDA-Public Use
  Company Number: US-ASTRAZENECA-2012SE43066

PATIENT
  Age: 49 Year
  Sex: Female
  Weight: 98.4 kg

DRUGS (7)
  1. LEXAPRO [Concomitant]
  2. LEVOTHYROXINE SODIUM [Concomitant]
     Indication: THYROID DISORDER
  3. DICLOFENAC [Concomitant]
     Indication: ARTHRITIS
  4. SYMBICORT [Suspect]
     Indication: BRONCHITIS CHRONIC
     Route: 055
  5. PROVENTIL [Concomitant]
  6. SPIRIVA [Concomitant]
  7. DICLOFENAC [Concomitant]
     Indication: BACK DISORDER

REACTIONS (5)
  - BACK PAIN [None]
  - ADVERSE EVENT [None]
  - THYROID DISORDER [None]
  - ARTHRALGIA [None]
  - OFF LABEL USE [None]
